FAERS Safety Report 6426679-0 (Version None)
Quarter: 2009Q4

REPORT INFORMATION
  Report Type: 
  Country: None (occurrence: None)
  Receive Date: 20091104
  Receipt Date: 20091026
  Transmission Date: 20100525
  Serious: Yes (Other)
  Sender: FDA-Public Use
  Company Number: BR-AVENTIS-200922139GDDC

PATIENT
  Age: 24 Year
  Sex: Female

DRUGS (3)
  1. LANTUS [Suspect]
     Route: 058
     Dates: start: 20050101, end: 20090101
  2. LANTUS [Suspect]
     Route: 058
     Dates: start: 20090101
  3. OPTIPEN (INSULIN PUMP) [Suspect]
     Dates: start: 20050101, end: 20091019

REACTIONS (3)
  - CHOLECYSTITIS [None]
  - HYPERGLYCAEMIA [None]
  - METAPLASIA [None]
